FAERS Safety Report 10247973 (Version 2)
Quarter: 2014Q2

REPORT INFORMATION
  Report Type: Spontaneous
  Country: US (occurrence: US)
  Receive Date: 20140619
  Receipt Date: 20140626
  Transmission Date: 20141212
  Serious: Yes (Death, Other)
  Sender: FDA-Public Use
  Company Number: US-TAKEDA-2014MPI001719

PATIENT
  Age: 15 Year
  Sex: Male

DRUGS (2)
  1. VELCADE [Suspect]
     Indication: TRANSPLANT REJECTION
     Dosage: 1.3 MG/M2, UNK
     Route: 042
  2. VELCADE [Suspect]
     Indication: OFF LABEL USE

REACTIONS (9)
  - Multi-organ failure [Fatal]
  - Neutropenia [Unknown]
  - Lymphopenia [Unknown]
  - Post procedural cellulitis [Unknown]
  - Decubitus ulcer [Unknown]
  - Renal failure acute [Unknown]
  - Diarrhoea [Unknown]
  - Anaemia [Unknown]
  - Off label use [Unknown]
